FAERS Safety Report 17111946 (Version 1)
Quarter: 2019Q4

REPORT INFORMATION
  Report Type: Spontaneous
  Country: US (occurrence: US)
  Receive Date: 20191111
  Receipt Date: 20191111
  Transmission Date: 20200122
  Serious: No
  Sender: FDA-Public Use
  Company Number: None

PATIENT
  Age: 32 Year
  Sex: Male

DRUGS (1)
  1. TEMOZOLOMIDE CAP 180MG 3X5 [Suspect]
     Active Substance: TEMOZOLOMIDE
     Indication: NEOPLASM MALIGNANT
     Route: 048
     Dates: start: 201910, end: 20191111

REACTIONS (2)
  - Platelet count decreased [None]
  - Therapy change [None]

NARRATIVE: CASE EVENT DATE: 20191111
